FAERS Safety Report 8953972 (Version 3)
Quarter: 2013Q1

REPORT INFORMATION
  Report Type: Report from Study
  Country: KR (occurrence: KR)
  Receive Date: 20121206
  Receipt Date: 20130129
  Transmission Date: 20140127
  Serious: Yes (Hospitalization)
  Sender: FDA-Public Use
  Company Number: KR-009507513-1212KOR000003

PATIENT
  Age: 14 Year
  Sex: Female
  Weight: 42 kg

DRUGS (13)
  1. APREPITANT [Suspect]
     Indication: PROPHYLAXIS OF NAUSEA AND VOMITING
     Dosage: 125 MG, ONCE
     Route: 048
     Dates: start: 20121105, end: 20121105
  2. APREPITANT [Suspect]
     Dosage: 80 MG, QD
     Route: 048
     Dates: start: 20121106, end: 20121107
  3. ONDANSETRON [Suspect]
     Indication: PROPHYLAXIS OF NAUSEA AND VOMITING
     Dosage: 6.3 MG, QD
     Dates: start: 20121105, end: 20121107
  4. CARBOPLATIN [Suspect]
     Indication: CHEMOTHERAPY
     Dosage: UNK MG, ONCE
     Route: 042
     Dates: start: 20121105, end: 20121105
  5. SEPTRIN [Concomitant]
     Indication: ANTIFUNGAL PROPHYLAXIS
     Dosage: 960 MG, BID
     Route: 048
     Dates: start: 20120430
  6. NYSTATIN [Concomitant]
     Indication: PROPHYLAXIS
     Dosage: 1 ML, QD GARGLE
     Route: 002
     Dates: start: 20120411
  7. DEXAMETHASONE [Concomitant]
     Indication: PROPHYLAXIS
     Dosage: UNK MG, ONCE
     Route: 042
     Dates: start: 20121105, end: 20121107
  8. ETOPOSIDE [Concomitant]
     Indication: CHEMOTHERAPY
     Dosage: UNK MG, ONCE
     Route: 042
     Dates: start: 20121105, end: 20121117
  9. VINCRISTINE SULFATE [Concomitant]
     Indication: CHEMOTHERAPY
     Dosage: UNK MG, ONCE
     Route: 042
     Dates: start: 20121107, end: 20121107
  10. FLUOROURACIL [Concomitant]
     Indication: CHEMOTHERAPY
     Dosage: UNK MG, ONCE
     Route: 042
     Dates: start: 20121107, end: 20121107
  11. FLUCONAZOLE [Concomitant]
     Indication: INFECTION PROPHYLAXIS
     Dosage: 120 MG, QD
     Route: 048
     Dates: start: 20121110, end: 20121118
  12. TAZOPERAN [Concomitant]
     Indication: INFECTION PROPHYLAXIS
     Dosage: 3.6 G, QID
     Route: 042
     Dates: start: 20121118, end: 20121122
  13. AMIKIN [Concomitant]
     Indication: INFECTION PROPHYLAXIS
     Dosage: 300 MG, TID
     Route: 042
     Dates: start: 20121118, end: 20121122

REACTIONS (1)
  - Febrile neutropenia [Recovered/Resolved]
